FAERS Safety Report 6072508-7 (Version None)
Quarter: 2009Q1

REPORT INFORMATION
  Report Type: 
  Country: None (occurrence: None)
  Receive Date: 20090210
  Receipt Date: 20081216
  Transmission Date: 20090719
  Serious: Yes (Hospitalization)
  Sender: FDA-Public Use
  Company Number: US-PFIZER INC-2009164833

PATIENT
  Sex: Female

DRUGS (1)
  1. MEDROXYPROGESTERONE AND MEDROXYPROGESTERONE ACETATE [Suspect]
     Dosage: 150 MG/ML, UNK

REACTIONS (2)
  - DEPRESSION [None]
  - PSYCHOTIC DISORDER [None]
